FAERS Safety Report 23967252 (Version 2)
Quarter: 2024Q4

REPORT INFORMATION
  Report Type: Spontaneous
  Country: LV (occurrence: LV)
  Receive Date: 20240612
  Receipt Date: 20241223
  Transmission Date: 20250115
  Serious: Yes (Other)
  Sender: NOVARTIS
  Company Number: LV-002147023-NVSC2024LV120291

PATIENT
  Age: 60 Year
  Sex: Female

DRUGS (3)
  1. KISQALI [Suspect]
     Active Substance: RIBOCICLIB
     Indication: Breast cancer
     Dosage: 600 MG
     Route: 065
     Dates: start: 202212
  2. ANASTROZOLE [Concomitant]
     Active Substance: ANASTROZOLE
     Indication: Product used for unknown indication
     Dosage: UNK
     Route: 065
  3. UNSPECIFIED INGREDIENT [Concomitant]
     Active Substance: UNSPECIFIED INGREDIENT
     Indication: Product used for unknown indication
     Dosage: UNK
     Route: 065

REACTIONS (7)
  - Neutrophil count decreased [Unknown]
  - Toxic skin eruption [Unknown]
  - Erythema [Unknown]
  - Skin depigmentation [Unknown]
  - Photosensitivity reaction [Unknown]
  - Swelling face [Unknown]
  - Pruritus [Unknown]
